FAERS Safety Report 5310843-8 (Version None)
Quarter: 2007Q2

REPORT INFORMATION
  Report Type: 
  Country: None (occurrence: None)
  Receive Date: 20070428
  Receipt Date: 20070423
  Transmission Date: 20071010
  Serious: Yes (Death, Other)
  Sender: FDA-Public Use
  Company Number: US-PFIZER INC-2003024947

PATIENT
  Sex: Female
  Weight: 90.7 kg

DRUGS (22)
  1. ZITHROMAX [Suspect]
     Indication: CELLULITIS
     Dosage: DAILY DOSE:250MG-FREQ:DAILY
     Route: 048
  2. ZITHROMAX [Interacting]
     Indication: BRONCHITIS
  3. BENADRYL [Interacting]
     Indication: ILL-DEFINED DISORDER
     Dosage: TEXT:UNKNOWN-FREQ:UNKNOWN
     Route: 065
  4. ZOLOFT [Interacting]
     Indication: ILL-DEFINED DISORDER
     Dosage: TEXT:UNKNOWN-FREQ:UNKNOWN
     Route: 065
  5. VISTARIL (IM) [Interacting]
     Indication: ILL-DEFINED DISORDER
     Dosage: TEXT:UNKNOWN-FREQ:UNKNOWN
     Route: 065
  6. GLIBENCLAMIDE [Interacting]
     Indication: ILL-DEFINED DISORDER
     Dosage: TEXT:UNKNOWN-FREQ:UNKNOWN
     Route: 065
  7. AMIODARONE [Interacting]
     Indication: ILL-DEFINED DISORDER
     Dosage: TEXT:UNKNOWN-FREQ:UNKNOWN
     Route: 065
  8. ZAFIRLUKAST [Concomitant]
     Route: 065
  9. LEVOTHYROXINE SODIUM [Concomitant]
     Route: 065
  10. METOLAZONE [Concomitant]
     Route: 065
  11. ZOLPIDEM TARTRATE [Concomitant]
     Route: 065
  12. FLUTICASONE PROPIONATE AND SALMETEROL XINAFOATE [Concomitant]
     Route: 065
  13. DOCUSATE SODIUM [Concomitant]
     Route: 065
  14. WARFARIN SODIUM [Concomitant]
     Route: 065
  15. SPIRONOLACTONE [Concomitant]
     Route: 065
  16. NYSTATIN [Concomitant]
     Route: 065
  17. LOSARTAN POTASSIUM [Concomitant]
     Route: 065
  18. PHENYLTOLOXAMINE AND HYDROCODONE [Concomitant]
     Route: 065
  19. ACETYLSALICYLIC ACID [Concomitant]
     Route: 065
  20. FUROSEMIDE [Concomitant]
     Route: 065
  21. LORAZEPAM [Concomitant]
     Route: 065
  22. DEXAMETHASONE [Concomitant]
     Route: 065

REACTIONS (4)
  - CARDIOMYOPATHY [None]
  - DRUG INTERACTION [None]
  - HYPERSENSITIVITY [None]
  - RASH [None]
